FAERS Safety Report 8322721-0 (Version None)
Quarter: 2012Q2

REPORT INFORMATION
  Report Type: 
  Country: None (occurrence: None)
  Receive Date: 20120430
  Receipt Date: 20120424
  Transmission Date: 20120825
  Serious: Yes (Hospitalization, Other)
  Sender: FDA-Public Use
  Company Number: US-BAYER-201032427NA

PATIENT
  Age: 18 Year
  Sex: Female
  Weight: 78.6 kg

DRUGS (15)
  1. YAZ [Suspect]
     Indication: DYSMENORRHOEA
  2. ANTIINFLAMMATORY/ANTIRHEUMATIC PRODUCTS [Concomitant]
  3. DILAUDID [Concomitant]
  4. OXYCODONE HCL [Concomitant]
  5. MULTIVITAMINS AND IRON [Concomitant]
  6. YAZ [Suspect]
     Indication: CONTRACEPTION
     Dosage: UNK
     Route: 048
     Dates: start: 20080215, end: 20080619
  7. ETHINYLESTRAD W/FERROUS FUM/NORETHISTER ACET [Concomitant]
     Dosage: UNK
     Dates: start: 20080619, end: 20080806
  8. MUSCLE RELAXANTS [Concomitant]
  9. ALTEPLASE [Concomitant]
  10. ONDANSETRON [Concomitant]
  11. TYLENOL REGULAR [Concomitant]
  12. LIDOCAINE [Concomitant]
  13. MORPHINE [Concomitant]
  14. GABAPENTIN [Concomitant]
  15. NEURONTIN [Concomitant]

REACTIONS (8)
  - DEEP VEIN THROMBOSIS [None]
  - VENOUS INJURY [None]
  - SWELLING [None]
  - GAIT DISTURBANCE [None]
  - OEDEMA [None]
  - PAIN [None]
  - POST THROMBOTIC SYNDROME [None]
  - EMOTIONAL DISTRESS [None]
